FAERS Safety Report 20633908 (Version 4)
Quarter: 2022Q4

REPORT INFORMATION
  Report Type: Report from Study
  Country: FR (occurrence: FR)
  Receive Date: 20220324
  Receipt Date: 20221018
  Transmission Date: 20230113
  Serious: Yes (Hospitalization, Other)
  Sender: FDA-Public Use
  Company Number: FR-BRISTOL-MYERS SQUIBB COMPANY-BMS-2022-039843

PATIENT
  Age: 71 Year
  Sex: Female
  Weight: 86 kg

DRUGS (44)
  1. IPILIMUMAB [Suspect]
     Active Substance: IPILIMUMAB
     Indication: Colorectal cancer metastatic
     Route: 065
     Dates: start: 20200831, end: 20200831
  2. IPILIMUMAB [Suspect]
     Active Substance: IPILIMUMAB
     Route: 065
     Dates: start: 20200629, end: 20200629
  3. RACECADOTRIL [Concomitant]
     Active Substance: RACECADOTRIL
     Indication: Adverse event
     Route: 048
     Dates: start: 20200930
  4. RACECADOTRIL [Concomitant]
     Active Substance: RACECADOTRIL
  5. RACECADOTRIL [Concomitant]
     Active Substance: RACECADOTRIL
  6. METFORMIN PAMOATE [Concomitant]
     Active Substance: METFORMIN PAMOATE
     Indication: Product used for unknown indication
     Route: 048
     Dates: start: 20201214
  7. METFORMIN PAMOATE [Concomitant]
     Active Substance: METFORMIN PAMOATE
  8. METFORMIN PAMOATE [Concomitant]
     Active Substance: METFORMIN PAMOATE
  9. VICTOZA [Concomitant]
     Active Substance: LIRAGLUTIDE
     Indication: Adverse event
     Route: 058
     Dates: start: 20210415
  10. VICTOZA [Concomitant]
     Active Substance: LIRAGLUTIDE
  11. VICTOZA [Concomitant]
     Active Substance: LIRAGLUTIDE
  12. INSULIN GLARGINE [Concomitant]
     Active Substance: INSULIN GLARGINE
     Indication: Adverse event
     Dosage: 62 ABSENT
     Route: 058
     Dates: start: 20210415
  13. INSULIN GLARGINE [Concomitant]
     Active Substance: INSULIN GLARGINE
  14. INSULIN GLARGINE [Concomitant]
     Active Substance: INSULIN GLARGINE
  15. REPAGLINIDE [Concomitant]
     Active Substance: REPAGLINIDE
     Indication: Adverse event
     Route: 048
     Dates: start: 20210415
  16. REPAGLINIDE [Concomitant]
     Active Substance: REPAGLINIDE
  17. REPAGLINIDE [Concomitant]
     Active Substance: REPAGLINIDE
  18. CLOBETASOL PROPIONATE [Concomitant]
     Active Substance: CLOBETASOL PROPIONATE
     Indication: Adverse event
     Dosage: 2 ABSENT
     Route: 061
     Dates: start: 20210706
  19. CLOBETASOL PROPIONATE [Concomitant]
     Active Substance: CLOBETASOL PROPIONATE
  20. CLOBETASOL PROPIONATE [Concomitant]
     Active Substance: CLOBETASOL PROPIONATE
  21. CLOBETASOL [Concomitant]
     Active Substance: CLOBETASOL
     Indication: Adverse event
     Dosage: 1 ABSENT
     Route: 061
     Dates: start: 20210706
  22. CLOBETASOL [Concomitant]
     Active Substance: CLOBETASOL
  23. CLOBETASOL [Concomitant]
     Active Substance: CLOBETASOL
  24. CALCIUM CARBONATE\CHOLECALCIFEROL [Concomitant]
     Active Substance: CALCIUM CARBONATE\CHOLECALCIFEROL
     Indication: Prophylaxis
     Route: 048
     Dates: start: 20210706
  25. CALCIUM CARBONATE\CHOLECALCIFEROL [Concomitant]
     Active Substance: CALCIUM CARBONATE\CHOLECALCIFEROL
  26. CALCIUM CARBONATE\CHOLECALCIFEROL [Concomitant]
     Active Substance: CALCIUM CARBONATE\CHOLECALCIFEROL
  27. FOLIC ACID [Concomitant]
     Active Substance: FOLIC ACID
     Indication: Adverse event
     Route: 058
     Dates: start: 20211013
  28. FOLIC ACID [Concomitant]
     Active Substance: FOLIC ACID
  29. FOLIC ACID [Concomitant]
     Active Substance: FOLIC ACID
  30. PREDNISONE [Concomitant]
     Active Substance: PREDNISONE
     Indication: Adverse event
     Route: 048
     Dates: start: 20211104
  31. PREDNISONE [Concomitant]
     Active Substance: PREDNISONE
  32. PREDNISONE [Concomitant]
     Active Substance: PREDNISONE
  33. ASPIRIN [Concomitant]
     Active Substance: ASPIRIN
     Indication: Product used for unknown indication
     Route: 048
     Dates: start: 20200316
  34. ASPIRIN [Concomitant]
     Active Substance: ASPIRIN
  35. ASPIRIN [Concomitant]
     Active Substance: ASPIRIN
  36. ONGLYZA [SAXAGLIPTIN] [Concomitant]
     Indication: Product used for unknown indication
     Route: 065
     Dates: start: 20200316
  37. FLUE VACCINATION [Concomitant]
     Indication: Prophylaxis
     Route: 065
     Dates: start: 20201201
  38. SARSCOV2 PFIZER [Concomitant]
     Indication: Prophylaxis
     Route: 065
     Dates: start: 20210401
  39. IRBESARTAN [Concomitant]
     Active Substance: IRBESARTAN
     Indication: Product used for unknown indication
     Route: 065
     Dates: start: 20200316
  40. LOPERAMIDE [Concomitant]
     Active Substance: LOPERAMIDE
     Indication: Adverse event
     Route: 065
     Dates: start: 20200930
  41. SMECTA [Concomitant]
     Active Substance: MONTMORILLONITE
     Indication: Adverse event
     Route: 065
     Dates: start: 20200930
  42. METFORMIN HYDROCHLORIDE [Concomitant]
     Active Substance: METFORMIN HYDROCHLORIDE
     Indication: Adverse event
     Route: 065
     Dates: start: 20210415
  43. LOCAPRED CREAM [Concomitant]
     Indication: Adverse event
     Route: 065
     Dates: start: 20210706
  44. METHOTREXATE [Concomitant]
     Active Substance: METHOTREXATE
     Indication: Adverse event
     Route: 065
     Dates: start: 20211013

REACTIONS (1)
  - Pemphigoid [Recovered/Resolved]

NARRATIVE: CASE EVENT DATE: 20220307
